FAERS Safety Report 18192707 (Version 1)
Quarter: 2020Q3

REPORT INFORMATION
  Report Type: Spontaneous
  Country: DE (occurrence: DE)
  Receive Date: 20200825
  Receipt Date: 20200825
  Transmission Date: 20201103
  Serious: No
  Sender: FDA-Public Use
  Company Number: DE-LUPIN PHARMACEUTICALS INC.-2019-05064

PATIENT
  Age: 81 Year
  Sex: Female

DRUGS (2)
  1. MEMANTINHYDROCHLORID?HORMOSAN 20 MG FILMTABLETTEN [Suspect]
     Active Substance: MEMANTINE HYDROCHLORIDE
     Indication: CATARACT
     Dosage: 10 MILLIGRAM, BID (HALF A TABLET IN THE MORNINGS AND EVENINGS)
     Route: 048
     Dates: start: 20180507
  2. MEMANTINHYDROCHLORID?HORMOSAN 20 MG FILMTABLETTEN [Suspect]
     Active Substance: MEMANTINE HYDROCHLORIDE
     Indication: GLAUCOMA

REACTIONS (1)
  - Off label use [Unknown]

NARRATIVE: CASE EVENT DATE: 20180507
